FAERS Safety Report 4917219-3 (Version None)
Quarter: 2006Q1

REPORT INFORMATION
  Report Type: 
  Country: None (occurrence: None)
  Receive Date: 20060221
  Receipt Date: 20051104
  Transmission Date: 20060701
  Serious: Yes (Hospitalization, Disabling)
  Sender: FDA-Public Use
  Company Number: US-MERCK-0511USA00967

PATIENT
  Age: 49 Year
  Sex: Male
  Weight: 109 kg

DRUGS (2)
  1. VIOXX [Suspect]
     Indication: SPONDYLITIS
     Route: 048
     Dates: start: 20000101, end: 20031105
  2. VIOXX [Suspect]
     Route: 048
     Dates: start: 20000101, end: 20031105

REACTIONS (8)
  - ARTHROPATHY [None]
  - CORONARY ARTERY DISEASE [None]
  - HERNIA [None]
  - LIMB INJURY [None]
  - MUSCULOSKELETAL DISORDER [None]
  - MYOCARDIAL INFARCTION [None]
  - NEPHROLITHIASIS [None]
  - SPINAL DISORDER [None]
